FAERS Safety Report 7948919-9 (Version None)
Quarter: 2011Q4

REPORT INFORMATION
  Report Type: 
  Country: None (occurrence: None)
  Receive Date: 20111130
  Receipt Date: 20111128
  Transmission Date: 20120403
  Serious: Yes (Death)
  Sender: FDA-Public Use
  Company Number: PHEH2011US010368

PATIENT
  Sex: Male

DRUGS (14)
  1. SYNTHROID [Concomitant]
     Dosage: 25 UG, UNK
     Route: 048
  2. TOBI [Suspect]
     Dosage: UNK UKN, UNK
  3. ASTELIN [Concomitant]
     Dosage: 137 UG, UNK
     Route: 048
  4. DIAZEPAM [Concomitant]
     Dosage: 10 MG, UNK
     Route: 048
  5. MUCINEX [Concomitant]
     Dosage: 600 MG, UNK
     Route: 048
  6. CELEXA [Concomitant]
     Dosage: 10 MG, UNK
     Route: 048
  7. AMRIX [Concomitant]
     Dosage: 15 MG, UNK
     Route: 048
  8. ZYVOX [Concomitant]
     Dosage: 600 MG, UNK
     Route: 048
  9. ACIDOPHILUS [Concomitant]
     Dosage: UNK UKN, UNK
     Route: 048
  10. COLACE [Concomitant]
     Dosage: 50 MG, UNK
     Route: 048
  11. MULTIVITAMIN [Concomitant]
     Dosage: UNK UKN, UNK
     Route: 048
  12. KEPPRA [Concomitant]
     Dosage: 500 MG, UNK
     Route: 048
  13. RANITIDINE [Concomitant]
     Dosage: 150 MG, UNK
     Route: 048
  14. KLOR-CON [Concomitant]
     Dosage: 10 MEQ, UNK
     Route: 048

REACTIONS (1)
  - DEATH [None]
